FAERS Safety Report 5162724-0 (Version None)
Quarter: 2006Q4

REPORT INFORMATION
  Report Type: 
  Country: None (occurrence: None)
  Receive Date: 20061201
  Receipt Date: 20060503
  Transmission Date: 20070319
  Serious: No
  Sender: FDA-Public Use
  Company Number: US-GLAXOSMITHKLINE-A0605136A

PATIENT
  Sex: Female

DRUGS (1)
  1. AUGMENTIN XR [Suspect]
     Dosage: 1000MG UNKNOWN
     Route: 048

REACTIONS (1)
  - CONSTIPATION [None]
